FAERS Safety Report 4315918-8 (Version None)
Quarter: 2004Q1

REPORT INFORMATION
  Report Type: 
  Country: None (occurrence: None)
  Receive Date: 20040310
  Receipt Date: 20040302
  Transmission Date: 20041129
  Serious: Yes (Life-Threatening)
  Sender: FDA-Public Use
  Company Number: 200410016BYL

PATIENT
  Age: 86 Year
  Sex: Female

DRUGS (17)
  1. ASPIRIN [Suspect]
     Indication: CEREBRAL INFARCTION
     Dosage: 100 MG, QD, ORAL
     Route: 048
     Dates: start: 20031025, end: 20031202
  2. FAMOTIDINE [Suspect]
     Indication: GASTROINTESTINAL HAEMORRHAGE
     Dosage: 20 MG, BID, INTRAVENOUS
     Route: 042
     Dates: start: 20031020, end: 20031024
  3. FAMOTIDINE [Suspect]
     Indication: PROPHYLAXIS
     Dosage: 20 MG, BID, INTRAVENOUS
     Route: 042
     Dates: start: 20031020, end: 20031024
  4. FAMOTIDINE [Suspect]
     Indication: GASTROINTESTINAL HAEMORRHAGE
     Dosage: 10 MG, BID, ORAL
     Route: 048
     Dates: start: 20031025, end: 20031202
  5. FAMOTIDINE [Suspect]
     Indication: PROPHYLAXIS
     Dosage: 10 MG, BID, ORAL
     Route: 048
     Dates: start: 20031025, end: 20031202
  6. PHENYTOIN [Suspect]
     Indication: CONVULSION PROPHYLAXIS
     Dosage: 125 MG, BID, INTRAVENOUS
     Route: 042
     Dates: start: 20031020, end: 20031024
  7. SIGMART (NICORANDIL) [Suspect]
     Indication: ANGINA PECTORIS
     Dosage: 10 MG, BID, ORAL
     Route: 048
     Dates: start: 20031101, end: 20031202
  8. SILECE (FLUNITRAZEPAM) [Suspect]
     Indication: INSOMNIA
     Dosage: 1 MG, QD, ORAL
     Route: 048
     Dates: start: 20031101, end: 20031202
  9. CEROCRAL (IFENPRODIL TARTRATE) [Suspect]
     Indication: CEREBRAL INFARCTION
     Dosage: 20 MG, TID, ORAL
     Route: 048
     Dates: start: 20031125, end: 20031202
  10. PHENYTOIN [Suspect]
     Indication: CONVULSION PROPHYLAXIS
     Dosage: 100 MG, BID, ORAL
     Route: 048
     Dates: start: 20031025, end: 20031202
  11. EBRANTIL (URAPIDIL) [Suspect]
     Indication: NEUROGENIC BLADDER
     Dosage: 15 MG, BID, ORAL
     Route: 048
     Dates: start: 20031104, end: 20031202
  12. UBRETID (DISTIGMINE BROMIDE) [Suspect]
     Indication: NEUROGENIC BLADDER
     Dosage: 5 MG, BID, ORAL
     Route: 048
     Dates: start: 20031104, end: 20031202
  13. FLOMOX (CEPCAPENE PIVOXIL HYDROCHLORIDE) [Suspect]
     Indication: CYSTITIS
     Dosage: 100 MG, TID, ORAL
     Route: 048
     Dates: start: 20031125, end: 20031202
  14. HEPARIN [Concomitant]
  15. RADICUT [Concomitant]
  16. GLYCEOL [Concomitant]
  17. CYANOCOBALAMIN [Concomitant]

REACTIONS (6)
  - ANGINA PECTORIS [None]
  - CYSTITIS [None]
  - INSOMNIA [None]
  - NEUROGENIC BLADDER [None]
  - PURPURA [None]
  - THROMBOCYTOPENIA [None]
